FAERS Safety Report 8366041-7 (Version None)
Quarter: 2012Q2

REPORT INFORMATION
  Report Type: 
  Country: None (occurrence: None)
  Receive Date: 20120517
  Receipt Date: 20120515
  Transmission Date: 20120825
  Serious: No
  Sender: FDA-Public Use
  Company Number: US-PFIZER INC-2012091791

PATIENT
  Sex: Male
  Weight: 20.862 kg

DRUGS (3)
  1. EQUETRO [Concomitant]
     Dosage: 200 MG, UNK
  2. GEODON [Suspect]
     Dosage: 60 MG, 1X/DAY
     Route: 048
     Dates: start: 20120101
  3. GEODON [Suspect]
     Indication: BIPOLAR I DISORDER
     Dosage: 40 MG, 1X/DAY
     Route: 048
     Dates: start: 20120321, end: 20120101

REACTIONS (1)
  - OROPHARYNGEAL PAIN [None]
